FAERS Safety Report 17684730 (Version 1)
Quarter: 2020Q2

REPORT INFORMATION
  Report Type: Spontaneous
  Country: CN (occurrence: CN)
  Receive Date: 20200420
  Receipt Date: 20200420
  Transmission Date: 20200714
  Serious: Yes (Other)
  Sender: FDA-Public Use
  Company Number: CN-ASTELLAS-2020US013762

PATIENT
  Age: 48 Year
  Sex: Male

DRUGS (10)
  1. ISONIAZID. [Concomitant]
     Active Substance: ISONIAZID
     Indication: CUTANEOUS TUBERCULOSIS
     Dosage: 0.3 G, ONCE DAILY
     Route: 065
  2. ETHAMBUTOL [Concomitant]
     Active Substance: ETHAMBUTOL HYDROCHLORIDE
     Indication: CUTANEOUS TUBERCULOSIS
     Route: 065
  3. RIFAMPICIN [Interacting]
     Active Substance: RIFAMPIN
     Indication: CUTANEOUS TUBERCULOSIS
     Dosage: 0.45 G, ONCE DAILY
     Route: 065
     Dates: end: 20190524
  4. TACROLIMUS. [Suspect]
     Active Substance: TACROLIMUS
     Indication: ANTINUCLEAR ANTIBODY POSITIVE
     Route: 065
     Dates: start: 201905
  5. MOXIFLOXACIN. [Concomitant]
     Active Substance: MOXIFLOXACIN
     Indication: CUTANEOUS TUBERCULOSIS
     Route: 065
  6. RIFAPENTINE [Interacting]
     Active Substance: RIFAPENTINE
     Indication: CUTANEOUS TUBERCULOSIS
     Dosage: 450 MG, TWICE WEEKLY (EVERY TUESDAY AND FRIDAY)
     Route: 065
     Dates: start: 20190524
  7. PREDNISONE ACETATE [Concomitant]
     Active Substance: PREDNISONE ACETATE
     Route: 065
     Dates: start: 201906
  8. PREDNISONE ACETATE [Concomitant]
     Active Substance: PREDNISONE ACETATE
     Route: 065
     Dates: start: 2019
  9. MYCOPHENOLATE MOFETIL. [Concomitant]
     Active Substance: MYCOPHENOLATE MOFETIL
     Indication: ANTINUCLEAR ANTIBODY POSITIVE
     Dosage: 0.5 G, TWICE DAILY
     Route: 065
     Dates: start: 201905
  10. PREDNISONE ACETATE [Concomitant]
     Active Substance: PREDNISONE ACETATE
     Indication: ANTINUCLEAR ANTIBODY POSITIVE
     Route: 065
     Dates: start: 201905

REACTIONS (4)
  - Immunosuppressant drug level decreased [Recovering/Resolving]
  - Drug interaction [Unknown]
  - Drug interaction [Unknown]
  - Product use in unapproved indication [Unknown]

NARRATIVE: CASE EVENT DATE: 2019
